FAERS Safety Report 16647152 (Version 1)
Quarter: 2019Q3

REPORT INFORMATION
  Report Type: Spontaneous
  Country: US (occurrence: US)
  Receive Date: 20190730
  Receipt Date: 20190730
  Transmission Date: 20191004
  Serious: Yes (Hospitalization)
  Sender: FDA-Public Use
  Company Number: US-STRIDES ARCOLAB LIMITED-2019SP004579

PATIENT
  Age: 15 Year
  Sex: Female

DRUGS (1)
  1. CYPROHEPTADINE. [Suspect]
     Active Substance: CYPROHEPTADINE
     Indication: PRODUCT USED FOR UNKNOWN INDICATION
     Dosage: UNK
     Route: 065

REACTIONS (8)
  - Sedation [Recovered/Resolved]
  - Agitation [Recovered/Resolved]
  - Intentional overdose [Unknown]
  - Sinus tachycardia [Recovered/Resolved]
  - Dysarthria [Recovered/Resolved]
  - Mydriasis [Recovered/Resolved]
  - Delirium [Recovered/Resolved]
  - Prescription drug used without a prescription [Unknown]
